FAERS Safety Report 21380402 (Version 1)
Quarter: 2022Q3

REPORT INFORMATION
  Report Type: Spontaneous
  Country: US (occurrence: None)
  Receive Date: 20220923
  Receipt Date: 20220923
  Transmission Date: 20221027
  Serious: Yes (Life-Threatening)
  Sender: FDA-Public Use
  Company Number: None

PATIENT
  Age: 65 Year
  Sex: Male
  Weight: 136.9 kg

DRUGS (1)
  1. DABIGATRAN [Suspect]
     Active Substance: DABIGATRAN
     Indication: Atrial fibrillation
     Dosage: FREQUENCY : TWICE A DAY;?
     Route: 048
     Dates: start: 20120308, end: 20120414

REACTIONS (6)
  - Respiratory depression [None]
  - Palpitations [None]
  - Tachycardia [None]
  - Acute myocardial infarction [None]
  - Cardio-respiratory arrest [None]
  - Supraventricular tachycardia [None]

NARRATIVE: CASE EVENT DATE: 20120414
